FAERS Safety Report 14383220 (Version 1)
Quarter: 2018Q1

REPORT INFORMATION
  Report Type: Spontaneous
  Country: FR (occurrence: FR)
  Receive Date: 20180115
  Receipt Date: 20180115
  Transmission Date: 20180509
  Serious: Yes (Hospitalization)
  Sender: FDA-Public Use
  Company Number: FR-TEVA-2018-FR-842891

PATIENT
  Age: 65 Year
  Sex: Female
  Weight: 68 kg

DRUGS (6)
  1. XEROQUEL LP 400 MG, COMPRIM? ? LIB?RATION PROLONG?E [Suspect]
     Active Substance: QUETIAPINE FUMARATE
     Route: 047
     Dates: start: 20170803, end: 20170803
  2. LAMICTAL [Suspect]
     Active Substance: LAMOTRIGINE
     Route: 048
     Dates: start: 20170803, end: 20170803
  3. SECTRAL [Suspect]
     Active Substance: ACEBUTOLOL HYDROCHLORIDE
     Route: 048
     Dates: start: 20170803, end: 20170803
  4. IMOVANE [Suspect]
     Active Substance: ZOPICLONE
     Route: 048
     Dates: start: 20170803, end: 20170803
  5. CLOPIDOGREL [Suspect]
     Active Substance: CLOPIDOGREL BISULFATE
     Route: 048
     Dates: start: 20170803, end: 20170803
  6. TERALITHE [Suspect]
     Active Substance: LITHIUM CARBONATE
     Route: 048
     Dates: start: 20170803, end: 20170803

REACTIONS (4)
  - Hypotension [Recovered/Resolved]
  - Disturbance in attention [Recovered/Resolved]
  - Somnolence [Recovered/Resolved]
  - Tremor [Recovered/Resolved]

NARRATIVE: CASE EVENT DATE: 20170804
